FAERS Safety Report 8906948 (Version 3)
Quarter: 2014Q1

REPORT INFORMATION
  Report Type: Spontaneous
  Country: US (occurrence: US)
  Receive Date: 20121114
  Receipt Date: 20140314
  Transmission Date: 20141002
  Serious: Yes (Hospitalization, Other)
  Sender: FDA-Public Use
  Company Number: US-BAYER-2012-116566

PATIENT
  Age: 21 Year
  Sex: Female
  Weight: 58.96 kg

DRUGS (2)
  1. YAZ [Suspect]
     Dosage: UNK
     Dates: start: 20070501, end: 200708
  2. IBUPROFEN [Concomitant]
     Dosage: UNK
     Dates: start: 2007, end: 2008

REACTIONS (9)
  - Cholecystitis chronic [None]
  - Cholecystectomy [None]
  - Pain [None]
  - Injury [None]
  - General physical health deterioration [None]
  - Anxiety [None]
  - Anhedonia [None]
  - Emotional distress [None]
  - Gallbladder pain [None]
